FAERS Safety Report 7564917-1 (Version None)
Quarter: 2011Q2

REPORT INFORMATION
  Report Type: 
  Country: None (occurrence: None)
  Receive Date: 20110622
  Receipt Date: 20110308
  Transmission Date: 20111010
  Serious: Yes (Life-Threatening, Other)
  Sender: FDA-Public Use
  Company Number: US-MYLANLABS-2011S1003386

PATIENT
  Age: 80 Year
  Sex: Female

DRUGS (5)
  1. LACTULOSE [Concomitant]
  2. PARADEX [Concomitant]
  3. COLACE [Concomitant]
  4. CLOZAPINE [Suspect]
     Route: 048
     Dates: start: 20080522
  5. ZOLOFT [Concomitant]

REACTIONS (1)
  - AGRANULOCYTOSIS [None]
